FAERS Safety Report 11639746 (Version 3)
Quarter: 2015Q4

REPORT INFORMATION
  Report Type: Spontaneous
  Country: AU (occurrence: AU)
  Receive Date: 20151019
  Receipt Date: 20151228
  Transmission Date: 20160304
  Serious: Yes (Other)
  Sender: FDA-Public Use
  Company Number: AU-AMGEN-AUSSP2015107922

PATIENT
  Age: 79 Year
  Sex: Female
  Weight: 54 kg

DRUGS (23)
  1. AROMASIN [Concomitant]
     Active Substance: EXEMESTANE
     Indication: BREAST CANCER METASTATIC
     Dosage: 25 MG, 1 IN THE MORNING UNK
     Dates: start: 200609
  2. COLOXYL                            /00061602/ [Concomitant]
     Dosage: 50 MG, BID
  3. MS CONTIN [Concomitant]
     Active Substance: MORPHINE SULFATE
     Dosage: 100 MG, 340 MG IN MORNING AND 230 MG IN NIGHT, UNK
  4. NEXIUM [Concomitant]
     Active Substance: ESOMEPRAZOLE MAGNESIUM
     Indication: NAUSEA
     Dosage: 40 MG, QD
  5. ORDINE                             /00036303/ [Concomitant]
     Dosage: 5 MG/ML, 5-10 ML ANYTIME, UNK
  6. SERENACE [Concomitant]
     Active Substance: HALOPERIDOL
     Indication: NAUSEA
     Dosage: 0.5 MG, 1 AT NIGHT, UNK
  7. MAXOLON [Concomitant]
     Active Substance: METOCLOPRAMIDE HYDROCHLORIDE
     Indication: VOMITING
  8. OSTELIN VITAMIN D [Concomitant]
     Active Substance: CHOLECALCIFEROL
     Dosage: 1000 UNIT, 1 IN THE MORNING, UNK
  9. PANADOL [Concomitant]
     Active Substance: ACETAMINOPHEN
     Dosage: 665 MG, 2 TID
  10. SENOKOT [Concomitant]
     Active Substance: SENNOSIDES
     Dosage: 7.5 MG, 4 NIGHT, UNK
  11. ZOFRAN [Concomitant]
     Active Substance: ONDANSETRON HYDROCHLORIDE
     Dosage: 8 MG, BID FOR 3 DAYS
  12. PLAVIX [Concomitant]
     Active Substance: CLOPIDOGREL BISULFATE
     Dosage: 75 MG, QD
     Dates: start: 20060918
  13. MAXOLON [Concomitant]
     Active Substance: METOCLOPRAMIDE HYDROCHLORIDE
     Indication: NAUSEA
     Dosage: 10 MG, 3 OR 4 PER DAY, UNK
  14. NEXIUM [Concomitant]
     Active Substance: ESOMEPRAZOLE MAGNESIUM
     Indication: GASTRIC ULCER
  15. PRAVACHOL [Concomitant]
     Active Substance: PRAVASTATIN SODIUM
     Dosage: 10 MG, 1 IN THE NIGHT, UNK
  16. RULIDE [Concomitant]
     Active Substance: ROXITHROMYCIN
     Dosage: 300 MG, QD
  17. NEURONTIN [Concomitant]
     Active Substance: GABAPENTIN
     Dosage: 300 MG, 2 TID
  18. OROXINE [Concomitant]
     Active Substance: LEVOTHYROXINE SODIUM
     Dosage: 50 MUG, DAILY 2 TABLETS ON MONDAY AND THURSDAY, 3 TABS FOR OTHER 5 DAYS, UNK
  19. XGEVA [Suspect]
     Active Substance: DENOSUMAB
     Indication: PRODUCT USED FOR UNKNOWN INDICATION
     Dosage: 120 MG, Q3MO
     Route: 058
     Dates: end: 20140303
  20. BEKUNIS SENNA                      /00142201/ [Concomitant]
     Dosage: 20 MG, BID
  21. CALTRATE [Concomitant]
     Active Substance: CALCIUM CARBONATE
     Indication: BLOOD CALCIUM DECREASED
     Dosage: 600 MG, 1-2 TABLET DAILY UNK
  22. KARVEA [Concomitant]
     Active Substance: IRBESARTAN
     Dosage: 75 MG, QD
     Dates: start: 20060720
  23. CLINDAMYCIN [Concomitant]
     Active Substance: CLINDAMYCIN\CLINDAMYCIN PHOSPHATE

REACTIONS (8)
  - Pain [Unknown]
  - Intervertebral disc degeneration [Unknown]
  - Osteonecrosis of jaw [Unknown]
  - Tooth extraction [Unknown]
  - Impaired healing [Unknown]
  - Wound drainage [Unknown]
  - Gastrooesophageal reflux disease [Unknown]
  - Hypothyroidism [Unknown]
